FAERS Safety Report 7404960-6 (Version None)
Quarter: 2011Q2

REPORT INFORMATION
  Report Type: 
  Country: None (occurrence: None)
  Receive Date: 20110411
  Receipt Date: 20110331
  Transmission Date: 20111010
  Serious: Yes (Death)
  Sender: FDA-Public Use
  Company Number: JP-ELI_LILLY_AND_COMPANY-JP201103003833

PATIENT
  Age: 84 Year
  Sex: Female
  Weight: 45 kg

DRUGS (12)
  1. HERBESSER [Concomitant]
     Indication: PROPHYLAXIS
     Dosage: 30 MG, TID
     Route: 048
     Dates: start: 20101127
  2. PROCYLIN [Concomitant]
     Indication: PROPHYLAXIS
     Dosage: 20 UG, TID
     Route: 048
     Dates: start: 20101127
  3. ASPIRIN [Concomitant]
     Indication: PROPHYLAXIS
     Dosage: 100 MG, QD
     Route: 048
     Dates: start: 20101127
  4. GASTER [Concomitant]
     Indication: PROPHYLAXIS
     Dosage: 20 MG, BID
     Route: 048
     Dates: start: 20101127
  5. MICARDIS [Concomitant]
     Indication: PROPHYLAXIS
     Dosage: 40 MG, QD
     Route: 048
     Dates: start: 20101127
  6. MYSLEE [Concomitant]
     Indication: PROPHYLAXIS
     Dosage: 10 MG, QD
     Route: 048
     Dates: start: 20101127, end: 20110202
  7. DEPAS [Concomitant]
     Indication: PROPHYLAXIS
     Dosage: 1 MG, QD
     Route: 048
     Dates: start: 20101127, end: 20110202
  8. MAGNESIUM OXIDE [Concomitant]
     Indication: PROPHYLAXIS
     Dosage: 0.25 G, TID
     Route: 048
     Dates: start: 20101127
  9. FORTEO [Suspect]
     Indication: OSTEOPOROSIS
     Dosage: 20 UG, QD
     Route: 058
     Dates: start: 20101130, end: 20110202
  10. LOXONIN [Concomitant]
     Indication: PROPHYLAXIS
     Dosage: 60 MG, TID
     Route: 048
     Dates: start: 20101127
  11. DIAZEPAM [Concomitant]
     Indication: PROPHYLAXIS
     Dosage: 4 MG, QD
     Route: 048
     Dates: start: 20100127, end: 20110202
  12. PURSENNID                          /00571902/ [Concomitant]
     Indication: PROPHYLAXIS
     Dosage: 12 MG, QD
     Route: 048
     Dates: start: 20101201, end: 20110202

REACTIONS (1)
  - SUDDEN DEATH [None]
